FAERS Safety Report 13847855 (Version 1)
Quarter: 2017Q3

REPORT INFORMATION
  Report Type: Spontaneous
  Country: US (occurrence: US)
  Receive Date: 20170808
  Receipt Date: 20170808
  Transmission Date: 20171127
  Serious: Yes (Disabling)
  Sender: FDA-Public Use
  Company Number: None

PATIENT
  Sex: Male
  Weight: 69.75 kg

DRUGS (3)
  1. MEN^S LIVING GREEN MULTIVITAMIN [Concomitant]
  2. OMEPRAZOLE. [Concomitant]
     Active Substance: OMEPRAZOLE
  3. IC DIAZEPAM 5MG [Suspect]
     Active Substance: DIAZEPAM
     Indication: MUSCLE STRAIN
     Dosage: ?          QUANTITY:1 TABLET(S);?
     Route: 048

REACTIONS (5)
  - Neck injury [None]
  - Anger [None]
  - Muscle twitching [None]
  - Withdrawal syndrome [None]
  - Drug effect increased [None]

NARRATIVE: CASE EVENT DATE: 20151101
